FAERS Safety Report 5846891-9 (Version None)
Quarter: 2008Q3

REPORT INFORMATION
  Report Type: 
  Country: None (occurrence: None)
  Receive Date: 20080815
  Receipt Date: 20080807
  Transmission Date: 20090109
  Serious: Yes (Other)
  Sender: FDA-Public Use
  Company Number: BR-PFIZER INC-2005033526

PATIENT
  Sex: Male
  Weight: 50 kg

DRUGS (10)
  1. CELEBRA [Suspect]
     Indication: ANKYLOSING SPONDYLITIS
     Route: 048
     Dates: start: 19990101, end: 20020101
  2. PREDNISONE TAB [Suspect]
     Dosage: DAILY DOSE:20MG
     Route: 048
  3. CAPTOPRIL [Concomitant]
     Route: 048
  4. SULFASALAZINE [Concomitant]
     Route: 048
  5. MONOCORDIL [Concomitant]
     Route: 048
  6. PROPRANOLOL [Concomitant]
  7. ACETYLSALICYLIC ACID SRT [Concomitant]
  8. CITALOR [Concomitant]
     Route: 048
  9. LIPITOR [Concomitant]
     Route: 048
  10. CORTICOSTEROIDS [Concomitant]

REACTIONS (2)
  - LIMB INJURY [None]
  - MYOCARDIAL INFARCTION [None]
